FAERS Safety Report 9758836 (Version 2)
Quarter: 2014Q2

REPORT INFORMATION
  Report Type: Spontaneous
  Country: US (occurrence: None)
  Receive Date: 20131216
  Receipt Date: 20140514
  Transmission Date: 20141212
  Serious: Yes (Hospitalization)
  Sender: FDA-Public Use
  Company Number: 076271

PATIENT
  Sex: Female
  Weight: 49 kg

DRUGS (1)
  1. CIMZIA [Suspect]
     Indication: CROHN^S DISEASE
     Dosage: (400 MG 1X/4 WEEKS, DOSE: 400MG SUBCUTANEOUS)
     Route: 058
     Dates: start: 20101013

REACTIONS (1)
  - Crohn^s disease [None]
